FAERS Safety Report 5160996-X (Version None)
Quarter: 2006Q4

REPORT INFORMATION
  Report Type: 
  Country: None (occurrence: None)
  Receive Date: 20061130
  Receipt Date: 20061120
  Transmission Date: 20070319
  Serious: Yes (Hospitalization)
  Sender: FDA-Public Use
  Company Number: GB-PURDUE-GBR_2006_0002621

PATIENT
  Age: 56 Year
  Sex: Male

DRUGS (3)
  1. MORPHINE SULFATE [Suspect]
     Indication: DRUG USE FOR UNKNOWN INDICATION
     Dosage: 60 MG, BID
     Route: 065
  2. NEURONTIN [Suspect]
     Indication: NEURALGIA
     Dosage: 2700 MG, DAILY
     Route: 065
  3. NEURONTIN [Suspect]
     Dosage: 900 MG, UNK
     Route: 065

REACTIONS (2)
  - DEPRESSIVE SYMPTOM [None]
  - DRUG INTERACTION [None]
